FAERS Safety Report 14457168 (Version 1)
Quarter: 2018Q1

REPORT INFORMATION
  Report Type: Spontaneous
  Country: US (occurrence: US)
  Receive Date: 20180127
  Receipt Date: 20180127
  Transmission Date: 20180509
  Serious: No
  Sender: FDA-Public Use
  Company Number: None

PATIENT
  Age: 67 Year
  Sex: Female

DRUGS (1)
  1. CAPECITABINE TAB 500 MG BER [Suspect]
     Active Substance: CAPECITABINE
     Indication: NEOPLASM MALIGNANT
     Dosage: 500MG 3QAM AND 3QPM ORAL
     Route: 048
     Dates: start: 20171127

REACTIONS (5)
  - Insurance issue [None]
  - Economic problem [None]
  - Crying [None]
  - Drug dose omission [None]
  - Constipation [None]

NARRATIVE: CASE EVENT DATE: 20180126
